FAERS Safety Report 10971877 (Version 1)
Quarter: 2015Q1

REPORT INFORMATION
  Report Type: Spontaneous
  Country: US (occurrence: US)
  Receive Date: 20150331
  Receipt Date: 20150331
  Transmission Date: 20150721
  Serious: Yes (Other)
  Sender: FDA-Public Use
  Company Number: US-ASTRAZENECA-2015SE29009

PATIENT
  Age: 62 Year
  Sex: Female

DRUGS (1)
  1. NEXIUM [Suspect]
     Active Substance: ESOMEPRAZOLE MAGNESIUM
     Route: 048

REACTIONS (6)
  - Hip fracture [Unknown]
  - Emotional disorder [Unknown]
  - Fall [Unknown]
  - Pain [Unknown]
  - Bone disorder [Unknown]
  - Wrist fracture [Unknown]

NARRATIVE: CASE EVENT DATE: 200809
